FAERS Safety Report 19649029 (Version 1)
Quarter: 2021Q3

REPORT INFORMATION
  Report Type: Report from Study
  Country: US (occurrence: US)
  Receive Date: 20210803
  Receipt Date: 20210803
  Transmission Date: 20211014
  Serious: Yes (Death)
  Sender: FDA-Public Use
  Company Number: US-ASTRAZENECA-2021A657020

PATIENT
  Sex: Female

DRUGS (16)
  1. ACYCLOVIR. [Concomitant]
     Active Substance: ACYCLOVIR
  2. FOLIC?ACID [Concomitant]
     Active Substance: FOLIC ACID
  3. LOPERAMIDE [Concomitant]
     Active Substance: LOPERAMIDE
  4. MAGNESIUM [Concomitant]
     Active Substance: MAGNESIUM
  5. FLUTICASONE?PROPIONATE [Concomitant]
     Active Substance: FLUTICASONE PROPIONATE
  6. LORAZEPAM. [Concomitant]
     Active Substance: LORAZEPAM
  7. DULERA [Concomitant]
     Active Substance: FORMOTEROL FUMARATE DIHYDRATE\MOMETASONE FUROATE
  8. VITAMIN D3 [Concomitant]
     Active Substance: CHOLECALCIFEROL
  9. OCUVITE ADULT 50 PLUS [Concomitant]
  10. PRIMIDONE. [Concomitant]
     Active Substance: PRIMIDONE
  11. CALCIUM [Concomitant]
     Active Substance: CALCIUM
  12. TAGRISSO [Suspect]
     Active Substance: OSIMERTINIB
     Indication: NON-SMALL CELL LUNG CANCER
     Route: 048
     Dates: start: 201701
  13. ALBUTEROL. [Concomitant]
     Active Substance: ALBUTEROL
  14. VITAMIN C [Concomitant]
     Active Substance: ASCORBIC ACID
  15. SELENIUM [Concomitant]
     Active Substance: SELENIUM
  16. POTASSIUM [Concomitant]
     Active Substance: POTASSIUM

REACTIONS (1)
  - Death [Fatal]
